FAERS Safety Report 5535185-7 (Version None)
Quarter: 2007Q4

REPORT INFORMATION
  Report Type: 
  Country: None (occurrence: None)
  Receive Date: 20071206
  Receipt Date: 20071130
  Transmission Date: 20080405
  Serious: Yes (Other)
  Sender: FDA-Public Use
  Company Number: PHEH2007US15376

PATIENT
  Sex: Female

DRUGS (1)
  1. ENABLEX [Suspect]

REACTIONS (1)
  - HALLUCINATION, VISUAL [None]
